FAERS Safety Report 8353202-6 (Version None)
Quarter: 2012Q2

REPORT INFORMATION
  Report Type: 
  Country: None (occurrence: None)
  Receive Date: 20120509
  Receipt Date: 20120501
  Transmission Date: 20120825
  Serious: Yes (Death, Hospitalization)
  Sender: FDA-Public Use
  Company Number: ADR-2012-00841

PATIENT
  Sex: Male

DRUGS (3)
  1. DILAUDID (HYDROMORPHONE), BUPIVACAINE [Concomitant]
  2. BACLOFEN [Suspect]
     Indication: POST LAMINECTOMY SYNDROME
  3. BACLOFEN [Suspect]
     Indication: PAIN

REACTIONS (1)
  - MYOCARDIAL INFARCTION [None]
